FAERS Safety Report 22197206 (Version 1)
Quarter: 2023Q2

REPORT INFORMATION
  Report Type: Other
  Country: None (occurrence: GB)
  Receive Date: 20230411
  Receipt Date: 20230411
  Transmission Date: 20230721
  Serious: Yes (Hospitalization, Other)
  Sender: FDA-Public Use
  Company Number: GB-ALSI-2023000040

PATIENT
  Age: 27 Year
  Sex: Male

DRUGS (1)
  1. NITROUS OXIDE [Suspect]
     Active Substance: NITROUS OXIDE
     Indication: Product used for unknown indication
     Route: 055

REACTIONS (4)
  - Substance-induced psychotic disorder [Recovered/Resolved]
  - Deep vein thrombosis [Unknown]
  - Subacute combined cord degeneration [Unknown]
  - Vitamin B12 deficiency [Unknown]
